FAERS Safety Report 4780520-0 (Version None)
Quarter: 2005Q3

REPORT INFORMATION
  Report Type: 
  Country: None (occurrence: None)
  Receive Date: 20050926
  Receipt Date: 20050913
  Transmission Date: 20060218
  Serious: Yes (Other)
  Sender: FDA-Public Use
  Company Number: US015892

PATIENT
  Age: 40 Year
  Sex: Female
  Weight: 60.782 kg

DRUGS (11)
  1. PROVIGIL [Suspect]
     Indication: FATIGUE
     Dosage: 200 MG QD ORAL
     Route: 048
     Dates: end: 20040701
  2. PROVIGIL [Suspect]
     Indication: LETHARGY
     Dosage: 200 MG QD ORAL
     Route: 048
     Dates: end: 20040701
  3. PROVIGIL [Suspect]
     Indication: FATIGUE
     Dosage: 20 MG QD ORAL
     Route: 048
     Dates: start: 20040801, end: 20040801
  4. PROVIGIL [Suspect]
     Indication: LETHARGY
     Dosage: 20 MG QD ORAL
     Route: 048
     Dates: start: 20040801, end: 20040801
  5. PROVIGIL [Suspect]
     Indication: FATIGUE
     Dosage: 100 MG QD ORAL
     Route: 048
     Dates: start: 20050801, end: 20050801
  6. PROVIGIL [Suspect]
     Indication: LETHARGY
     Dosage: 100 MG QD ORAL
     Route: 048
     Dates: start: 20050801, end: 20050801
  7. DEXTROAMPHETAMINE [Suspect]
     Indication: FATIGUE
  8. DEXTROAMPHETAMINE [Suspect]
     Indication: LETHARGY
  9. METHYLDOPA [Concomitant]
  10. XANAX [Concomitant]
  11. CLOMIPRAMINE HCL [Concomitant]

REACTIONS (12)
  - ABNORMAL SENSATION IN EYE [None]
  - ANGER [None]
  - CEREBROVASCULAR ACCIDENT [None]
  - CONDITION AGGRAVATED [None]
  - DEPRESSION [None]
  - DRUG WITHDRAWAL SYNDROME [None]
  - EYE PAIN [None]
  - GLOSSODYNIA [None]
  - HEADACHE [None]
  - HYPERTENSION [None]
  - HYPOAESTHESIA [None]
  - LACUNAR INFARCTION [None]
